FAERS Safety Report 14306579 (Version 4)
Quarter: 2018Q2

REPORT INFORMATION
  Report Type: Report from Study
  Country: US (occurrence: US)
  Receive Date: 20171220
  Receipt Date: 20180528
  Transmission Date: 20180711
  Serious: Yes (Other)
  Sender: FDA-Public Use
  Company Number: US-BIOGEN-2017BI00495913

PATIENT
  Sex: Female

DRUGS (3)
  1. TECFIDERA [Suspect]
     Active Substance: DIMETHYL FUMARATE
     Dosage: MAINTENANCE
     Route: 048
     Dates: start: 20140324
  2. TECFIDERA [Suspect]
     Active Substance: DIMETHYL FUMARATE
     Indication: MULTIPLE SCLEROSIS
     Dosage: MAINTENANCE DOSE
     Route: 048
     Dates: start: 20130502
  3. TECFIDERA [Suspect]
     Active Substance: DIMETHYL FUMARATE
     Route: 065
     Dates: start: 20130606, end: 20140327

REACTIONS (18)
  - Fall [Recovered/Resolved]
  - Intervertebral disc degeneration [Not Recovered/Not Resolved]
  - Vision blurred [Not Recovered/Not Resolved]
  - Cognitive disorder [Unknown]
  - Type 2 diabetes mellitus [Not Recovered/Not Resolved]
  - Balance disorder [Not Recovered/Not Resolved]
  - Depressed mood [Not Recovered/Not Resolved]
  - Gait disturbance [Unknown]
  - Sleep apnoea syndrome [Unknown]
  - Muscular weakness [Not Recovered/Not Resolved]
  - Pain [Unknown]
  - Flushing [Recovered/Resolved]
  - Liver function test increased [Not Recovered/Not Resolved]
  - Renal impairment [Unknown]
  - Sleep paralysis [Unknown]
  - Memory impairment [Not Recovered/Not Resolved]
  - Muscle spasms [Not Recovered/Not Resolved]
  - Peroneal nerve palsy [Not Recovered/Not Resolved]

NARRATIVE: CASE EVENT DATE: 2014
